FAERS Safety Report 14956467 (Version 1)
Quarter: 2018Q2

REPORT INFORMATION
  Report Type: Spontaneous
  Country: US (occurrence: US)
  Receive Date: 20180531
  Receipt Date: 20180531
  Transmission Date: 20180711
  Serious: No
  Sender: FDA-Public Use
  Company Number: US-NOVEN PHARMACEUTICALS, INC.-US2017000611

PATIENT

DRUGS (2)
  1. DAYTRANA [Suspect]
     Active Substance: METHYLPHENIDATE
     Indication: ATTENTION DEFICIT/HYPERACTIVITY DISORDER
     Dosage: 10 MG, UNKNOWN
     Route: 062
     Dates: start: 20121203, end: 20130113
  2. DAYTRANA [Suspect]
     Active Substance: METHYLPHENIDATE
     Dosage: 10 MG, UNK
     Route: 062
     Dates: start: 20170331

REACTIONS (5)
  - Application site erythema [Not Recovered/Not Resolved]
  - Ear injury [Not Recovered/Not Resolved]
  - Compulsive lip biting [Unknown]
  - Application site pruritus [Not Recovered/Not Resolved]
  - Tic [Unknown]

NARRATIVE: CASE EVENT DATE: 2012
